FAERS Safety Report 15951381 (Version 2)
Quarter: 2019Q1

REPORT INFORMATION
  Report Type: Report from Study
  Country: US (occurrence: US)
  Receive Date: 20190211
  Receipt Date: 20190218
  Transmission Date: 20190417
  Serious: Yes (Death, Hospitalization, Other)
  Sender: FDA-Public Use
  Company Number: US-GILEAD-2019-0390022

PATIENT
  Age: 76 Year
  Sex: Female

DRUGS (1)
  1. AMBRISENTAN [Suspect]
     Active Substance: AMBRISENTAN
     Indication: PULMONARY ARTERIAL HYPERTENSION
     Dosage: 10 MG, QD
     Route: 048
     Dates: start: 20181229, end: 201901

REACTIONS (7)
  - Splenic rupture [Recovered/Resolved]
  - Fall [Unknown]
  - Fall [Unknown]
  - Contusion [Unknown]
  - Rib fracture [Unknown]
  - Chest injury [Unknown]
  - Death [Fatal]

NARRATIVE: CASE EVENT DATE: 20190101
